FAERS Safety Report 8202761-2 (Version None)
Quarter: 2012Q1

REPORT INFORMATION
  Report Type: 
  Country: None (occurrence: None)
  Receive Date: 20120312
  Receipt Date: 20120312
  Transmission Date: 20120608
  Serious: Yes (Other)
  Sender: FDA-Public Use
  Company Number: None

PATIENT
  Age: 38 Year
  Sex: Male
  Weight: 68.038 kg

DRUGS (2)
  1. LOTRIMIN AF [Suspect]
     Indication: TINEA CRURIS
     Dosage: SPRAY
     Route: 061
     Dates: start: 20120220, end: 20120223
  2. LOTRIMIN AF LIQUID SPRAY [Concomitant]
     Dosage: SPRAY
     Route: 061
     Dates: start: 20120220, end: 20120223

REACTIONS (1)
  - GENITAL RASH [None]
